FAERS Safety Report 9596797 (Version 1)
Quarter: 2013Q4

REPORT INFORMATION
  Report Type: Spontaneous
  Country: CA (occurrence: CA)
  Receive Date: 20131004
  Receipt Date: 20131004
  Transmission Date: 20140711
  Serious: Yes (Other)
  Sender: FDA-Public Use
  Company Number: CA-MERCK-1310CAN000524

PATIENT
  Sex: Male

DRUGS (2)
  1. EZETROL [Suspect]
     Indication: PRODUCT USED FOR UNKNOWN INDICATION
     Route: 065
  2. EZETROL [Suspect]
     Dosage: UNK
     Route: 065
     Dates: start: 201306

REACTIONS (2)
  - Neoplasm malignant [Unknown]
  - Vasculitis [Not Recovered/Not Resolved]
